FAERS Safety Report 9221870 (Version 1)
Quarter: 2013Q2

REPORT INFORMATION
  Report Type: Spontaneous
  Country: US (occurrence: None)
  Receive Date: 20130410
  Receipt Date: 20130410
  Transmission Date: 20140414
  Serious: Yes (Death)
  Sender: FDA-Public Use
  Company Number: None

PATIENT
  Age: 82 Year
  Sex: Male
  Weight: 75.7 kg

DRUGS (2)
  1. WARFARIN [Suspect]
     Indication: DEEP VEIN THROMBOSIS
     Dosage: ?  DAILY PO?YEARS
     Route: 048
  2. ASA [Suspect]

REACTIONS (4)
  - Subarachnoid haemorrhage [None]
  - International normalised ratio increased [None]
  - Refusal of treatment by relative [None]
  - Cardiac arrest [None]
